FAERS Safety Report 20988289 (Version 1)
Quarter: 2022Q2

REPORT INFORMATION
  Report Type: Spontaneous
  Country: JP (occurrence: JP)
  Receive Date: 20220621
  Receipt Date: 20220621
  Transmission Date: 20220721
  Serious: Yes (Hospitalization)
  Sender: FDA-Public Use
  Company Number: JP-PRAXGEN-2022PPLIT00004

PATIENT
  Age: 51 Year
  Sex: Male

DRUGS (8)
  1. PREDNISONE [Suspect]
     Active Substance: PREDNISONE
     Indication: COVID-19 pneumonia
     Route: 065
     Dates: start: 202009
  2. PREDNISONE [Suspect]
     Active Substance: PREDNISONE
     Route: 065
     Dates: start: 202010
  3. PREDNISONE [Suspect]
     Active Substance: PREDNISONE
     Route: 065
     Dates: start: 202010
  4. PREDNISONE [Suspect]
     Active Substance: PREDNISONE
     Route: 065
     Dates: start: 202012
  5. PREDNISONE [Suspect]
     Active Substance: PREDNISONE
     Route: 065
     Dates: start: 2021, end: 20210223
  6. REMDESIVIR [Concomitant]
     Active Substance: REMDESIVIR
     Route: 065
     Dates: start: 202012
  7. DEXAMETHASONE [Concomitant]
     Active Substance: DEXAMETHASONE
     Route: 065
     Dates: start: 202009
  8. RITUXIMAB [Concomitant]
     Active Substance: RITUXIMAB
     Route: 065
     Dates: start: 202006

REACTIONS (3)
  - COVID-19 [Recovered/Resolved]
  - Disease recurrence [Unknown]
  - Off label use [Unknown]

NARRATIVE: CASE EVENT DATE: 20200101
